FAERS Safety Report 25392984 (Version 1)
Quarter: 2025Q2

REPORT INFORMATION
  Report Type: Spontaneous
  Country: US (occurrence: US)
  Receive Date: 20250604
  Receipt Date: 20250604
  Transmission Date: 20250716
  Serious: Yes (Hospitalization)
  Sender: CIPLA
  Company Number: US-CIPLA (EU) LIMITED-2025US06620

PATIENT

DRUGS (76)
  1. LENALIDOMIDE [Suspect]
     Active Substance: LENALIDOMIDE
     Indication: Plasma cell myeloma
     Route: 065
     Dates: start: 20240209
  2. LENALIDOMIDE [Suspect]
     Active Substance: LENALIDOMIDE
     Route: 048
     Dates: start: 20240627
  3. LENALIDOMIDE [Suspect]
     Active Substance: LENALIDOMIDE
     Route: 065
     Dates: start: 20240711
  4. LENALIDOMIDE [Suspect]
     Active Substance: LENALIDOMIDE
     Route: 065
     Dates: start: 20240913
  5. LENALIDOMIDE [Suspect]
     Active Substance: LENALIDOMIDE
     Route: 065
     Dates: start: 20241203
  6. LENALIDOMIDE [Suspect]
     Active Substance: LENALIDOMIDE
     Route: 065
     Dates: start: 20241219
  7. LENALIDOMIDE [Suspect]
     Active Substance: LENALIDOMIDE
     Route: 065
     Dates: start: 20250102
  8. LENALIDOMIDE [Suspect]
     Active Substance: LENALIDOMIDE
     Route: 065
     Dates: start: 20250108
  9. LENALIDOMIDE [Suspect]
     Active Substance: LENALIDOMIDE
     Route: 065
     Dates: start: 20250123
  10. LENALIDOMIDE [Suspect]
     Active Substance: LENALIDOMIDE
     Route: 065
     Dates: start: 20250128
  11. LENALIDOMIDE [Suspect]
     Active Substance: LENALIDOMIDE
     Route: 065
     Dates: start: 20250213
  12. LENALIDOMIDE [Suspect]
     Active Substance: LENALIDOMIDE
     Route: 065
     Dates: start: 20250214
  13. LENALIDOMIDE [Suspect]
     Active Substance: LENALIDOMIDE
     Route: 065
     Dates: start: 20250306
  14. LENALIDOMIDE [Suspect]
     Active Substance: LENALIDOMIDE
     Route: 065
     Dates: start: 20250310
  15. LENALIDOMIDE [Suspect]
     Active Substance: LENALIDOMIDE
     Route: 065
     Dates: start: 20250401
  16. LENALIDOMIDE [Suspect]
     Active Substance: LENALIDOMIDE
     Route: 065
     Dates: start: 20250417
  17. LENALIDOMIDE [Suspect]
     Active Substance: LENALIDOMIDE
     Route: 065
     Dates: start: 20250422
  18. LENALIDOMIDE [Suspect]
     Active Substance: LENALIDOMIDE
     Route: 065
     Dates: start: 20250508
  19. LENALIDOMIDE [Suspect]
     Active Substance: LENALIDOMIDE
     Route: 065
     Dates: start: 20250519
  20. REVLIMID [Concomitant]
     Active Substance: LENALIDOMIDE
     Indication: Product used for unknown indication
     Route: 048
     Dates: start: 20230808
  21. REVLIMID [Concomitant]
     Active Substance: LENALIDOMIDE
     Route: 048
     Dates: start: 20231114
  22. REVLIMID [Concomitant]
     Active Substance: LENALIDOMIDE
     Route: 048
     Dates: start: 20231226
  23. REVLIMID [Concomitant]
     Active Substance: LENALIDOMIDE
     Route: 048
     Dates: start: 20231229
  24. REVLIMID [Concomitant]
     Active Substance: LENALIDOMIDE
     Route: 048
     Dates: start: 20240103
  25. REVLIMID [Concomitant]
     Active Substance: LENALIDOMIDE
     Route: 048
     Dates: start: 20240117
  26. REVLIMID [Concomitant]
     Active Substance: LENALIDOMIDE
     Route: 048
     Dates: start: 20240124
  27. REVLIMID [Concomitant]
     Active Substance: LENALIDOMIDE
     Route: 048
     Dates: start: 20240207
  28. REVLIMID [Concomitant]
     Active Substance: LENALIDOMIDE
     Route: 048
     Dates: start: 20240209
  29. REVLIMID [Concomitant]
     Active Substance: LENALIDOMIDE
     Route: 048
     Dates: start: 20240222
  30. REVLIMID [Concomitant]
     Active Substance: LENALIDOMIDE
     Route: 048
     Dates: start: 20240328
  31. REVLIMID [Concomitant]
     Active Substance: LENALIDOMIDE
     Route: 048
     Dates: start: 20240617
  32. REVLIMID [Concomitant]
     Active Substance: LENALIDOMIDE
     Route: 048
     Dates: start: 20240617
  33. REVLIMID [Concomitant]
     Active Substance: LENALIDOMIDE
     Route: 048
     Dates: start: 20240705
  34. REVLIMID [Concomitant]
     Active Substance: LENALIDOMIDE
     Route: 048
     Dates: start: 20240709
  35. REVLIMID [Concomitant]
     Active Substance: LENALIDOMIDE
     Route: 048
     Dates: start: 20240711
  36. REVLIMID [Concomitant]
     Active Substance: LENALIDOMIDE
     Route: 048
     Dates: start: 20240731
  37. REVLIMID [Concomitant]
     Active Substance: LENALIDOMIDE
     Route: 048
     Dates: start: 20240807
  38. REVLIMID [Concomitant]
     Active Substance: LENALIDOMIDE
     Route: 048
     Dates: start: 20240821
  39. REVLIMID [Concomitant]
     Active Substance: LENALIDOMIDE
     Route: 048
     Dates: start: 20240828
  40. REVLIMID [Concomitant]
     Active Substance: LENALIDOMIDE
     Route: 048
     Dates: start: 20240912
  41. REVLIMID [Concomitant]
     Active Substance: LENALIDOMIDE
     Route: 048
     Dates: start: 20240913
  42. REVLIMID [Concomitant]
     Active Substance: LENALIDOMIDE
     Route: 048
     Dates: start: 20241003
  43. REVLIMID [Concomitant]
     Active Substance: LENALIDOMIDE
     Route: 048
     Dates: start: 20241007
  44. REVLIMID [Concomitant]
     Active Substance: LENALIDOMIDE
     Route: 048
     Dates: start: 20241024
  45. REVLIMID [Concomitant]
     Active Substance: LENALIDOMIDE
     Route: 048
     Dates: start: 20241030
  46. REVLIMID [Concomitant]
     Active Substance: LENALIDOMIDE
     Route: 048
     Dates: start: 20241030
  47. REVLIMID [Concomitant]
     Active Substance: LENALIDOMIDE
     Route: 048
     Dates: start: 20241120
  48. REVLIMID [Concomitant]
     Active Substance: LENALIDOMIDE
     Route: 048
     Dates: start: 20241127
  49. REVLIMID [Concomitant]
     Active Substance: LENALIDOMIDE
     Route: 048
     Dates: start: 20241211
  50. REVLIMID [Concomitant]
     Active Substance: LENALIDOMIDE
     Route: 048
     Dates: start: 20241213
  51. DUTASTERIDE [Concomitant]
     Active Substance: DUTASTERIDE
     Indication: Product used for unknown indication
     Route: 065
  52. TYLENOL EXTRA STRENGTH [Concomitant]
     Active Substance: ACETAMINOPHEN
     Indication: Product used for unknown indication
     Route: 065
  53. ATORVASTATIN [Concomitant]
     Active Substance: ATORVASTATIN
     Indication: Product used for unknown indication
     Route: 065
  54. SODIUM BICARBONATE [Concomitant]
     Active Substance: SODIUM BICARBONATE
     Indication: Product used for unknown indication
     Route: 065
  55. IRBESARTAN [Concomitant]
     Active Substance: IRBESARTAN
     Indication: Product used for unknown indication
     Route: 065
  56. IRBESARTAN [Concomitant]
     Active Substance: IRBESARTAN
     Route: 065
  57. CLOPIDOGREL BISULFATE [Concomitant]
     Active Substance: CLOPIDOGREL BISULFATE
     Indication: Product used for unknown indication
     Route: 065
  58. FINASTERIDE [Concomitant]
     Active Substance: FINASTERIDE
     Indication: Product used for unknown indication
     Route: 048
  59. METOPROLOL TARTRATE [Concomitant]
     Active Substance: METOPROLOL TARTRATE
     Indication: Product used for unknown indication
     Route: 065
  60. ONDANSETRON HYDROCHLORIDE [Concomitant]
     Active Substance: ONDANSETRON HYDROCHLORIDE
     Indication: Product used for unknown indication
     Route: 065
  61. TAMSULOSIN HYDROCHLORIDE [Concomitant]
     Active Substance: TAMSULOSIN HYDROCHLORIDE
     Indication: Product used for unknown indication
     Route: 065
  62. DARZALEX [Concomitant]
     Active Substance: DARATUMUMAB
     Indication: Product used for unknown indication
     Route: 065
  63. XGEVA [Concomitant]
     Active Substance: DENOSUMAB
     Indication: Product used for unknown indication
     Route: 065
  64. ASPIRIN [Concomitant]
     Active Substance: ASPIRIN
     Indication: Product used for unknown indication
     Route: 065
  65. ACYCLOVIR [Concomitant]
     Active Substance: ACYCLOVIR
     Indication: Product used for unknown indication
     Route: 065
  66. FAMOTIDINE [Concomitant]
     Active Substance: FAMOTIDINE
     Indication: Product used for unknown indication
     Route: 048
  67. EZETIMIBE [Concomitant]
     Active Substance: EZETIMIBE
     Indication: Product used for unknown indication
     Route: 065
  68. CITALOPRAM HYDROBROMIDE [Concomitant]
     Active Substance: CITALOPRAM HYDROBROMIDE
     Indication: Product used for unknown indication
     Route: 065
  69. LOSARTAN POTASSIUM [Concomitant]
     Active Substance: LOSARTAN POTASSIUM
     Indication: Product used for unknown indication
     Route: 065
  70. ATORVASTATIN CALCIUM [Concomitant]
     Active Substance: ATORVASTATIN CALCIUM
     Indication: Product used for unknown indication
     Route: 065
  71. ALFUZOSIN HYDROCHLORIDE [Concomitant]
     Active Substance: ALFUZOSIN HYDROCHLORIDE
     Indication: Product used for unknown indication
     Route: 065
  72. DEXAMETHASONE [Concomitant]
     Active Substance: DEXAMETHASONE
     Indication: Product used for unknown indication
     Route: 065
  73. AMLODIPINE BESYLATE [Concomitant]
     Active Substance: AMLODIPINE BESYLATE
     Indication: Product used for unknown indication
     Route: 065
  74. FLUTICASONE PROPIONATE [Concomitant]
     Active Substance: FLUTICASONE PROPIONATE
     Indication: Product used for unknown indication
     Route: 065
  75. TRAZODONE HCL [Concomitant]
     Active Substance: TRAZODONE HYDROCHLORIDE
     Indication: Product used for unknown indication
     Route: 065
  76. FUROSEMIDE [Concomitant]
     Active Substance: FUROSEMIDE
     Indication: Product used for unknown indication
     Route: 065

REACTIONS (2)
  - Red blood cell count decreased [Recovered/Resolved]
  - White blood cell count decreased [Recovered/Resolved]

NARRATIVE: CASE EVENT DATE: 20250506
